FAERS Safety Report 9408298 (Version 1)
Quarter: 2013Q3

REPORT INFORMATION
  Report Type: Spontaneous
  Country: AT (occurrence: AT)
  Receive Date: 20130718
  Receipt Date: 20130718
  Transmission Date: 20140515
  Serious: Yes (Hospitalization, Disabling)
  Sender: FDA-Public Use
  Company Number: PHHY2013AT075398

PATIENT
  Age: 66 Year
  Sex: Female

DRUGS (8)
  1. CEFUROXIME [Suspect]
     Indication: URINARY TRACT INFECTION
     Dosage: 500 MG, BID
     Route: 048
  2. APREDNISOLON [Concomitant]
     Dosage: AT AN ALTERNATING DOSAGE OF 2.5 MG OR 5 MG
  3. ENBREL [Concomitant]
     Dosage: 25 MG AT 4 WEEKLY INTERVAL
  4. OSTEOCALVIT [Concomitant]
  5. OLEOVIT D3 [Concomitant]
     Dosage: 5 GTT, UNK
  6. BETA BLOCKING AGENTS [Concomitant]
  7. AKTIFERRIN [Concomitant]
  8. VALORON [Concomitant]
     Dosage: 20-25 UG, UNK

REACTIONS (6)
  - Cranial nerve disorder [Unknown]
  - Syncope [Recovered/Resolved with Sequelae]
  - Tinnitus [Recovered/Resolved]
  - Cerebral haematoma [Unknown]
  - Clavicle fracture [Unknown]
  - Rash [Recovered/Resolved]
